FAERS Safety Report 8268440-0 (Version None)
Quarter: 2012Q2

REPORT INFORMATION
  Report Type: 
  Country: None (occurrence: None)
  Receive Date: 20120409
  Receipt Date: 20120329
  Transmission Date: 20120825
  Serious: Yes (Hospitalization, Other)
  Sender: FDA-Public Use
  Company Number: US-ELI_LILLY_AND_COMPANY-US201202004206

PATIENT
  Sex: Female

DRUGS (14)
  1. FORTEO [Suspect]
     Dosage: 20 UG, QD
     Dates: start: 20120313
  2. CELEBREX [Concomitant]
     Indication: PAIN IN EXTREMITY
     Dosage: 2 DF, UNK
  3. FORTEO [Suspect]
     Indication: OSTEOPOROSIS
     Dosage: 20 UG, QD
  4. FORTEO [Suspect]
     Dosage: 20 UG, QD
     Dates: start: 20120209
  5. FLEXAMIN [Concomitant]
     Indication: ARTHRALGIA
  6. NASONEX [Concomitant]
  7. FORTEO [Suspect]
     Dosage: 20 UG, QD
     Dates: start: 20111120, end: 20120204
  8. SINGULAIR [Concomitant]
     Indication: HYPERSENSITIVITY
  9. VITAMIN D [Concomitant]
  10. ASPIRIN [Concomitant]
     Dosage: 81 MG, UNK
  11. CALCIUM CARBONATE [Concomitant]
     Dosage: 1200 MG, UNK
  12. LIPITOR [Concomitant]
     Indication: BLOOD CHOLESTEROL INCREASED
  13. ASPIRIN [Concomitant]
  14. ADVAIR DISKUS 100/50 [Concomitant]
     Dosage: UNK, BID

REACTIONS (16)
  - BLOOD CALCIUM INCREASED [None]
  - BLOOD PRESSURE DECREASED [None]
  - EAR PAIN [None]
  - HYPOAESTHESIA [None]
  - MUSCULAR WEAKNESS [None]
  - DIZZINESS [None]
  - FEMUR FRACTURE [None]
  - BACK PAIN [None]
  - ARTHRALGIA [None]
  - PALPITATIONS [None]
  - PAIN IN EXTREMITY [None]
  - FATIGUE [None]
  - FALL [None]
  - ASTHENIA [None]
  - MEDICATION ERROR [None]
  - DRUG DOSE OMISSION [None]
